FAERS Safety Report 8498650-9 (Version None)
Quarter: 2012Q3

REPORT INFORMATION
  Report Type: 
  Country: None (occurrence: None)
  Receive Date: 20120709
  Receipt Date: 20120628
  Transmission Date: 20120928
  Serious: No
  Sender: FDA-Public Use
  Company Number: US-AMGEN-USASP2011017665

PATIENT
  Age: 20 Year
  Sex: Female

DRUGS (3)
  1. ENBREL [Suspect]
     Indication: PSORIASIS
     Dosage: 50 MG, QWK
     Dates: start: 20061101, end: 20070101
  2. CYCLOSPORINE [Concomitant]
  3. ENBREL [Suspect]
     Indication: PSORIATIC ARTHROPATHY

REACTIONS (5)
  - LABORATORY TEST ABNORMAL [None]
  - GAIT DISTURBANCE [None]
  - DRUG INEFFECTIVE [None]
  - PSORIATIC ARTHROPATHY [None]
  - PSORIASIS [None]
